FAERS Safety Report 26067742 (Version 1)
Quarter: 2025Q4

REPORT INFORMATION
  Report Type: Spontaneous
  Country: CA (occurrence: CA)
  Receive Date: 20251120
  Receipt Date: 20251120
  Transmission Date: 20260117
  Serious: Yes (Hospitalization, Other)
  Sender: CHEPLAPHARM
  Company Number: CA-CHEPLA-2025013110

PATIENT
  Age: 63 Year
  Sex: Female

DRUGS (20)
  1. CLONAZEPAM [Suspect]
     Active Substance: CLONAZEPAM
     Dosage: SHE CONFIRMED THAT SHE WAS INCREASED BACK TO 3 1/2 PILLS EACH DAY (1 1/2 IN THE MORNING AND 2 PIL...
  2. CLONAZEPAM [Suspect]
     Active Substance: CLONAZEPAM
     Dosage: SHE ADVISED THAT SHE WAS TAKING 3 1/2 PILLS A DAY, AND THEY DECREASED TO 3, AND THEN 2 1/2
  3. VYNDAMAX [Suspect]
     Active Substance: TAFAMIDIS
     Indication: Cardiac amyloidosis
     Dosage: DAILY DOSE: 61 MILLIGRAM
     Route: 048
     Dates: start: 20231006
  4. ATORVASTATIN [Concomitant]
     Active Substance: ATORVASTATIN
     Indication: Dyslipidaemia
     Dosage: ONGOING
  5. BUPROPION [Concomitant]
     Active Substance: BUPROPION
     Dosage: ONGOING
  6. CARVEDILOL [Concomitant]
     Active Substance: CARVEDILOL
     Indication: Cardiac failure
  7. CALCIUM CARBONATE [Concomitant]
     Active Substance: CALCIUM CARBONATE
     Dosage: ONGOING
  8. DULOXETINE [Concomitant]
     Active Substance: DULOXETINE
     Dosage: ONGOING
  9. ENTRESTO [Concomitant]
     Active Substance: SACUBITRIL\VALSARTAN
     Indication: Cardiac failure
     Dosage: ONGOING
  10. EZETIMIBE [Concomitant]
     Active Substance: EZETIMIBE
     Indication: Dyslipidaemia
     Dosage: ONGOING
  11. DAPAGLIFLOZIN [Concomitant]
     Active Substance: DAPAGLIFLOZIN
     Indication: Cardiac failure
  12. IVABRADINE [Concomitant]
     Active Substance: IVABRADINE
     Indication: Cardiac failure
     Dosage: ONGOING
  13. IVABRADINE [Concomitant]
     Active Substance: IVABRADINE
     Dosage: ONGOING
  14. MAGNESIUM OXIDE [Concomitant]
     Active Substance: MAGNESIUM OXIDE
     Dosage: ONGOING
  15. MAGNESIUM SULFATE [Concomitant]
     Active Substance: MAGNESIUM SULFATE
     Dosage: ONGOING
  16. PANTOPRAZOLE [Concomitant]
     Active Substance: PANTOPRAZOLE
     Indication: Gastrooesophageal reflux disease
     Dosage: ONGOING
  17. SPIRONOLACTONE [Concomitant]
     Active Substance: SPIRONOLACTONE
     Indication: Cardiac failure
  18. SYNTHROID [Concomitant]
     Active Substance: LEVOTHYROXINE SODIUM
     Indication: Hypothyroidism
  19. TRAZODONE [Concomitant]
     Active Substance: TRAZODONE HYDROCHLORIDE
     Dosage: ONGOING
  20. WELLBUTRIN [Concomitant]
     Active Substance: BUPROPION HYDROCHLORIDE

REACTIONS (28)
  - Gastroenteritis salmonella [Not Recovered/Not Resolved]
  - Gastrointestinal disorder [Unknown]
  - Asthenia [Unknown]
  - Diarrhoea [Unknown]
  - Skin discolouration [Unknown]
  - Vomiting [Unknown]
  - Hypotension [Recovering/Resolving]
  - Acute kidney injury [Recovering/Resolving]
  - Typhoid fever [Unknown]
  - Cataract [Unknown]
  - Poor quality sleep [Unknown]
  - Tendon pain [Not Recovered/Not Resolved]
  - Weight decreased [Not Recovered/Not Resolved]
  - Malaise [Unknown]
  - Fatigue [Unknown]
  - Hypomagnesaemia [Unknown]
  - Hypocalcaemia [Unknown]
  - Visual impairment [Not Recovered/Not Resolved]
  - Fall [Unknown]
  - Confusional state [Not Recovered/Not Resolved]
  - Gait disturbance [Unknown]
  - Head injury [Unknown]
  - Nasal injury [Unknown]
  - Scab [Unknown]
  - Muscle atrophy [Unknown]
  - Blood pressure increased [Unknown]
  - Withdrawal syndrome [Recovered/Resolved]
  - Intentional product use issue [Unknown]

NARRATIVE: CASE EVENT DATE: 20240101
